FAERS Safety Report 13094407 (Version 1)
Quarter: 2017Q1

REPORT INFORMATION
  Report Type: Spontaneous
  Country: US (occurrence: US)
  Receive Date: 20170106
  Receipt Date: 20170106
  Transmission Date: 20170428
  Serious: No
  Sender: FDA-Public Use
  Company Number: US-PFIZER INC-2017004831

PATIENT
  Age: 6 Year
  Sex: Female
  Weight: 23.59 kg

DRUGS (2)
  1. QUILLIVANT XR [Suspect]
     Active Substance: METHYLPHENIDATE HYDROCHLORIDE
     Indication: ATTENTION DEFICIT/HYPERACTIVITY DISORDER
     Dosage: 3.5 ML, 1X/DAY
     Dates: start: 20161216
  2. QUILLIVANT XR [Suspect]
     Active Substance: METHYLPHENIDATE HYDROCHLORIDE
     Dosage: 4 ML, 1X/DAY
     Dates: start: 20170104

REACTIONS (6)
  - Decreased appetite [Unknown]
  - Distractibility [Unknown]
  - Pain [Unknown]
  - Abnormal behaviour [Unknown]
  - Weight decreased [Unknown]
  - Drug effect incomplete [Unknown]

NARRATIVE: CASE EVENT DATE: 20170103
